FAERS Safety Report 6354806-2 (Version None)
Quarter: 2009Q3

REPORT INFORMATION
  Report Type: 
  Country: None (occurrence: None)
  Receive Date: 20090914
  Receipt Date: 20090904
  Transmission Date: 20100115
  Serious: Yes (Other)
  Sender: FDA-Public Use
  Company Number: BE-ASTRAZENECA-2009SE06619

PATIENT
  Age: 17269 Day
  Sex: Female
  Weight: 56.9 kg

DRUGS (4)
  1. SEROQUEL [Suspect]
     Indication: BIPOLAR DISORDER
     Dosage: 3X100 MG / DAY, 200 MG IN THE EVENING UP TO 800 MG
     Route: 048
     Dates: start: 20090707, end: 20090729
  2. ZYPREXA [Concomitant]
  3. TEMESTA [Concomitant]
     Route: 048
  4. DEPAKENE [Concomitant]
     Route: 048

REACTIONS (1)
  - FLUID RETENTION [None]
